FAERS Safety Report 10067913 (Version 2)
Quarter: 2014Q2

REPORT INFORMATION
  Report Type: Report from Study
  Country: US (occurrence: US)
  Receive Date: 20140409
  Receipt Date: 20140409
  Transmission Date: 20141212
  Serious: Yes (Other)
  Sender: FDA-Public Use
  Company Number: PHEH2014US005352

PATIENT
  Age: 17 Year
  Sex: Female
  Weight: 51.7 kg

DRUGS (2)
  1. GILENYA [Suspect]
     Indication: MULTIPLE SCLEROSIS
     Dosage: 0.5 MG, QD
     Route: 048
     Dates: start: 20130122, end: 20140115
  2. GILENYA [Suspect]
     Indication: OFF LABEL USE

REACTIONS (2)
  - Chest pain [Recovered/Resolved]
  - Vertigo [Unknown]
